FAERS Safety Report 5546310-6 (Version None)
Quarter: 2007Q4

REPORT INFORMATION
  Report Type: 
  Country: None (occurrence: None)
  Receive Date: 20071211
  Receipt Date: 20071203
  Transmission Date: 20080405
  Serious: Yes (Hospitalization)
  Sender: FDA-Public Use
  Company Number: US-BRISTOL-MYERS SQUIBB COMPANY-14006381

PATIENT
  Age: 51 Year
  Sex: Female
  Weight: 76 kg

DRUGS (3)
  1. CETUXIMAB [Suspect]
     Indication: NASOPHARYNGEAL CANCER
     Dosage: STARTED ON 09/OCT/2007.
     Dates: start: 20071120, end: 20071120
  2. CISPLATIN [Suspect]
     Route: 042
  3. RADIATION THERAPY [Suspect]

REACTIONS (3)
  - OESOPHAGITIS [None]
  - PYREXIA [None]
  - STAPHYLOCOCCAL INFECTION [None]
